FAERS Safety Report 21498407 (Version 1)
Quarter: 2022Q4

REPORT INFORMATION
  Report Type: Spontaneous
  Country: US (occurrence: None)
  Receive Date: 20221021
  Receipt Date: 20221021
  Transmission Date: 20230112
  Serious: Yes (Hospitalization)
  Sender: FDA-Public Use
  Company Number: None

PATIENT
  Age: 48 Year
  Sex: Female

DRUGS (1)
  1. MAVENCLAD [Suspect]
     Active Substance: CLADRIBINE
     Indication: Multiple sclerosis
     Dosage: 20MG DAILY ORAL
     Route: 048
     Dates: start: 20220927

REACTIONS (4)
  - Pericarditis [None]
  - Abdominal pain upper [None]
  - Flatulence [None]
  - Vomiting [None]

NARRATIVE: CASE EVENT DATE: 20221020
